FAERS Safety Report 4352626-1 (Version None)
Quarter: 2004Q2

REPORT INFORMATION
  Report Type: 
  Country: None (occurrence: None)
  Receive Date: 20040504
  Receipt Date: 20040423
  Transmission Date: 20050107
  Serious: Yes (Hospitalization)
  Sender: FDA-Public Use
  Company Number: PHRM2004FR01629

PATIENT
  Age: 11 Year
  Sex: Male
  Weight: 43 kg

DRUGS (1)
  1. NEORAL [Suspect]
     Indication: TRANSPLANT
     Dosage: 130 MG DAILY
     Route: 048

REACTIONS (4)
  - ACCIDENTAL OVERDOSE [None]
  - BLOOD CREATININE INCREASED [None]
  - MEDICATION ERROR [None]
  - OVERDOSE [None]
